FAERS Safety Report 4694389-6 (Version None)
Quarter: 2005Q2

REPORT INFORMATION
  Report Type: 
  Country: None (occurrence: None)
  Receive Date: 20050614
  Receipt Date: 20050309
  Transmission Date: 20051028
  Serious: No
  Sender: FDA-Public Use
  Company Number: USA050392876

PATIENT
  Sex: Male

DRUGS (2)
  1. CIALIS [Suspect]
     Indication: LIBIDO DISORDER
     Dosage: 10 MG/ 1 AS NEEDED
     Dates: start: 20050302
  2. ZOCOR (SIMVASTATIN RATIOPHARM) [Concomitant]

REACTIONS (1)
  - DRUG INEFFECTIVE [None]
